FAERS Safety Report 14313583 (Version 2)
Quarter: 2018Q1

REPORT INFORMATION
  Report Type: Spontaneous
  Country: RU (occurrence: RU)
  Receive Date: 20171221
  Receipt Date: 20180226
  Transmission Date: 20180509
  Serious: Yes (Other)
  Sender: FDA-Public Use
  Company Number: RU-ASTRAZENECA-2017SF29632

PATIENT
  Age: 66 Year
  Sex: Female
  Weight: 90 kg

DRUGS (7)
  1. BRILINTA [Suspect]
     Active Substance: TICAGRELOR
     Route: 048
     Dates: start: 201701
  2. PENICILLIN NOS [Concomitant]
     Active Substance: PENICILLIN
  3. TORASEMIDE [Concomitant]
     Active Substance: TORSEMIDE
  4. ATORVASTATIN [Concomitant]
     Active Substance: ATORVASTATIN
  5. KETOROL [Concomitant]
     Active Substance: KETOROLAC TROMETHAMINE
     Dates: start: 20171214
  6. BISOPROLOL [Concomitant]
     Active Substance: BISOPROLOL
  7. ISOKET [Concomitant]
     Active Substance: ISOSORBIDE DINITRATE

REACTIONS (4)
  - Blood pressure increased [Recovered/Resolved]
  - Skin exfoliation [Not Recovered/Not Resolved]
  - Dry skin [Not Recovered/Not Resolved]
  - Headache [Recovered/Resolved]

NARRATIVE: CASE EVENT DATE: 20171214
